FAERS Safety Report 19966927 (Version 2)
Quarter: 2022Q4

REPORT INFORMATION
  Report Type: Report from Study
  Country: CA (occurrence: CA)
  Receive Date: 20211019
  Receipt Date: 20221229
  Transmission Date: 20230112
  Serious: Yes (Hospitalization, Other)
  Sender: FDA-Public Use
  Company Number: CA-BAUSCH-BL-2021-034562

PATIENT
  Sex: Female

DRUGS (13)
  1. ALBUTEROL [Suspect]
     Active Substance: ALBUTEROL
     Indication: Product used for unknown indication
     Route: 065
  2. ALVESCO [Suspect]
     Active Substance: CICLESONIDE
     Indication: Product used for unknown indication
     Dosage: 2 EVERY 1 DAYS
     Route: 065
  3. ALVESCO [Suspect]
     Active Substance: CICLESONIDE
     Dosage: AEROSOL, METERED DOSE
     Route: 065
  4. ALVESCO [Suspect]
     Active Substance: CICLESONIDE
     Route: 055
  5. BUDESONIDE\FORMOTEROL FUMARATE [Suspect]
     Active Substance: BUDESONIDE\FORMOTEROL FUMARATE
     Indication: Product used for unknown indication
     Dosage: NOT SPECIFIED
     Route: 065
  6. BUDESONIDE\FORMOTEROL FUMARATE [Suspect]
     Active Substance: BUDESONIDE\FORMOTEROL FUMARATE
     Route: 055
  7. FLUTICASONE FUROATE\VILANTEROL TRIFENATATE [Suspect]
     Active Substance: FLUTICASONE FUROATE\VILANTEROL TRIFENATATE
     Indication: Product used for unknown indication
     Route: 065
  8. OLODATEROL HYDROCHLORIDE\TIOTROPIUM BROMIDE MONOHYDRATE [Suspect]
     Active Substance: OLODATEROL HYDROCHLORIDE\TIOTROPIUM BROMIDE MONOHYDRATE
     Indication: Product used for unknown indication
     Dosage: 2 EVERY 1 DAYS
     Route: 065
  9. CORTEF [Suspect]
     Active Substance: HYDROCORTISONE
     Indication: Product used for unknown indication
     Dosage: NOT SPECIFIED
     Route: 048
  10. CORTEF [Suspect]
     Active Substance: HYDROCORTISONE
     Route: 065
  11. SINGULAIR [Suspect]
     Active Substance: MONTELUKAST SODIUM
     Indication: Product used for unknown indication
     Route: 048
  12. SINGULAIR [Suspect]
     Active Substance: MONTELUKAST SODIUM
     Route: 048
  13. OLODATEROL HYDROCHLORIDE [Suspect]
     Active Substance: OLODATEROL HYDROCHLORIDE
     Indication: Product used for unknown indication
     Route: 065

REACTIONS (5)
  - Pneumonia [Unknown]
  - Asthma [Unknown]
  - Drug intolerance [Unknown]
  - Dyspnoea [Unknown]
  - Therapeutic product effect incomplete [Unknown]
